FAERS Safety Report 7178867-6 (Version None)
Quarter: 2010Q4

REPORT INFORMATION
  Report Type: 
  Country: None (occurrence: None)
  Receive Date: 20101221
  Receipt Date: 20101221
  Transmission Date: 20110411
  Serious: No
  Sender: FDA-Public Use
  Company Number: AU-JNJFOC-20101100318

PATIENT
  Sex: Female

DRUGS (5)
  1. DURAGESIC-100 [Suspect]
     Indication: BACK PAIN
     Route: 062
  2. INSULIN [Concomitant]
     Indication: DIABETES MELLITUS
     Dosage: 3 INSULIN INJECTIONS PER DAY
     Route: 050
  3. IMIPRAMINE [Concomitant]
     Route: 065
  4. AVAPRO [Concomitant]
     Indication: BLOOD PRESSURE
     Route: 065
  5. ADEFIN XL [Concomitant]
     Route: 065

REACTIONS (6)
  - ABDOMINAL DISCOMFORT [None]
  - DRUG PRESCRIBING ERROR [None]
  - THERAPY CESSATION [None]
  - THINKING ABNORMAL [None]
  - TREMOR [None]
  - VOMITING [None]
